FAERS Safety Report 7406573-9 (Version None)
Quarter: 2011Q2

REPORT INFORMATION
  Report Type: 
  Country: None (occurrence: None)
  Receive Date: 20110411
  Receipt Date: 20110331
  Transmission Date: 20111010
  Serious: Yes (Hospitalization)
  Sender: FDA-Public Use
  Company Number: US-ASTRAZENECA-2010SE54665

PATIENT
  Age: 58 Year
  Sex: Female
  Weight: 59.9 kg

DRUGS (14)
  1. SEROQUEL [Suspect]
     Indication: TACHYPHRENIA
     Route: 048
     Dates: start: 20100401
  2. SEROQUEL [Suspect]
     Route: 048
     Dates: end: 20110301
  3. LORAZEPAM [Concomitant]
  4. NEURANTIN [Concomitant]
     Indication: ANXIETY
     Route: 048
  5. SEROQUEL [Suspect]
     Route: 048
     Dates: end: 20110301
  6. SEROQUEL [Suspect]
     Indication: MAJOR DEPRESSION
     Route: 048
     Dates: start: 20100401
  7. SEROQUEL [Suspect]
     Route: 048
     Dates: end: 20110301
  8. PAXIL [Concomitant]
     Route: 048
  9. WELLBUTRIN [Concomitant]
  10. SEROQUEL [Suspect]
     Route: 048
     Dates: end: 20110301
  11. SEROQUEL [Suspect]
     Indication: ANXIETY
     Route: 048
     Dates: start: 20100401
  12. SEROQUEL [Suspect]
     Indication: BIPOLAR DISORDER
     Route: 048
     Dates: start: 20100401
  13. SEROQUEL [Suspect]
     Indication: INSOMNIA
     Route: 048
     Dates: start: 20100401
  14. SEROQUEL [Suspect]
     Route: 048
     Dates: end: 20110301

REACTIONS (4)
  - DEPRESSION [None]
  - ALCOHOL ABUSE [None]
  - WEIGHT INCREASED [None]
  - SUICIDAL IDEATION [None]
